FAERS Safety Report 4823792-6 (Version None)
Quarter: 2005Q4

REPORT INFORMATION
  Report Type: 
  Country: None (occurrence: None)
  Receive Date: 20051109
  Receipt Date: 20050803
  Transmission Date: 20060501
  Serious: Yes (Other)
  Sender: FDA-Public Use
  Company Number: US-MERCK-0508USA01247

PATIENT
  Age: 82 Year
  Sex: Male
  Weight: 87 kg

DRUGS (2)
  1. VIOXX [Suspect]
     Indication: SPONDYLITIS
     Route: 048
     Dates: start: 20020801, end: 20030724
  2. CENTRUM SILVER [Concomitant]
     Route: 065

REACTIONS (6)
  - ACUTE CORONARY SYNDROME [None]
  - CEREBROVASCULAR ACCIDENT [None]
  - GASTROOESOPHAGEAL REFLUX DISEASE [None]
  - HYPERLIPIDAEMIA [None]
  - MYOCARDIAL INFARCTION [None]
  - MYOCARDIAL ISCHAEMIA [None]
